FAERS Safety Report 6626856-X (Version None)
Quarter: 2010Q1

REPORT INFORMATION
  Report Type: 
  Country: None (occurrence: None)
  Receive Date: 20100308
  Receipt Date: 20100223
  Transmission Date: 20100710
  Serious: Yes (Hospitalization)
  Sender: FDA-Public Use
  Company Number: 2010AL000928

PATIENT
  Age: 32 Year
  Sex: Male

DRUGS (5)
  1. METOCLOPRAMIDE [Suspect]
     Indication: NAUSEA
     Dosage: 10 MG; TID; PO
     Route: 048
     Dates: start: 20091017
  2. REYATAZ [Concomitant]
  3. TRUVADA [Concomitant]
  4. RITONAVIR [Concomitant]
  5. ATRIPLA [Concomitant]

REACTIONS (2)
  - NEPHROLITHIASIS [None]
  - RENAL COLIC [None]
